FAERS Safety Report 10963436 (Version 1)
Quarter: 2015Q1

REPORT INFORMATION
  Report Type: Spontaneous
  Country: US (occurrence: None)
  Receive Date: 20150327
  Receipt Date: 20150327
  Transmission Date: 20150721
  Serious: Yes (Hospitalization)
  Sender: FDA-Public Use
  Company Number: None

PATIENT
  Age: 79 Year
  Sex: Female
  Weight: 68.2 kg

DRUGS (27)
  1. KCL [Concomitant]
     Active Substance: POTASSIUM CHLORIDE
  2. LEVOTHYROXINE [Concomitant]
     Active Substance: LEVOTHYROXINE
  3. MULTIVITAMIN [Concomitant]
     Active Substance: VITAMINS
  4. NUVIGIL [Concomitant]
     Active Substance: ARMODAFINIL
  5. TYLENOL [Concomitant]
     Active Substance: ACETAMINOPHEN
  6. ZANTAC [Concomitant]
     Active Substance: RANITIDINE HYDROCHLORIDE
  7. ZETIA [Concomitant]
     Active Substance: EZETIMIBE
  8. PERCOCET [Concomitant]
     Active Substance: ACETAMINOPHEN\OXYCODONE HYDROCHLORIDE
  9. ATIVAN [Concomitant]
     Active Substance: LORAZEPAM
  10. COMPAZINE [Concomitant]
     Active Substance: PROCHLORPERAZINE MALEATE
  11. LOSARTAN [Concomitant]
     Active Substance: LOSARTAN
  12. MG CARBONATE [Concomitant]
  13. MOBIC [Concomitant]
     Active Substance: MELOXICAM
  14. CYCLOPHOSPHAMIDE. [Suspect]
     Active Substance: CYCLOPHOSPHAMIDE
     Dates: end: 20140917
  15. BACTROBAN 2% [Concomitant]
  16. EVISTA [Concomitant]
     Active Substance: RALOXIFENE HYDROCHLORIDE
  17. DOXORUBICIN HYDROCHLORIDE. [Suspect]
     Active Substance: DOXORUBICIN HYDROCHLORIDE
     Dates: end: 20140917
  18. RITUXIMAB [Suspect]
     Active Substance: RITUXIMAB
     Dates: end: 20140917
  19. VINCRISTINE SULFATE. [Suspect]
     Active Substance: VINCRISTINE SULFATE
     Dates: end: 20140917
  20. CLINDAMYCIN [Concomitant]
     Active Substance: CLINDAMYCIN\CLINDAMYCIN PHOSPHATE
  21. PRILOSEC [Concomitant]
     Active Substance: OMEPRAZOLE MAGNESIUM
  22. PREDNISONE. [Suspect]
     Active Substance: PREDNISONE
     Dates: end: 20140917
  23. LASIX [Concomitant]
     Active Substance: FUROSEMIDE
  24. LOMOTIL [Concomitant]
     Active Substance: ATROPINE SULFATE\DIPHENOXYLATE HYDROCHLORIDE
  25. SOMA [Concomitant]
     Active Substance: CARISOPRODOL
  26. KEFLEX [Concomitant]
     Active Substance: CEPHALEXIN
  27. NASONAX [Concomitant]

REACTIONS (1)
  - Febrile neutropenia [None]

NARRATIVE: CASE EVENT DATE: 20140924
